FAERS Safety Report 7823594-2 (Version None)
Quarter: 2011Q4

REPORT INFORMATION
  Report Type: 
  Country: None (occurrence: None)
  Receive Date: 20111019
  Receipt Date: 20111013
  Transmission Date: 20120403
  Serious: Yes (Other)
  Sender: FDA-Public Use
  Company Number: US-PFIZER INC-2011246315

PATIENT
  Sex: Female
  Weight: 81.633 kg

DRUGS (1)
  1. TETRACYCLINE HCL [Suspect]
     Indication: VOMITING IN PREGNANCY
     Dosage: UNK
     Dates: start: 19570101

REACTIONS (1)
  - DIVERTICULITIS [None]
